FAERS Safety Report 9725685 (Version 2)
Quarter: 2013Q4

REPORT INFORMATION
  Report Type: Spontaneous
  Country: JP (occurrence: JP)
  Receive Date: 20131203
  Receipt Date: 20131219
  Transmission Date: 20140711
  Serious: Yes (Death, Hospitalization)
  Sender: FDA-Public Use
  Company Number: JP-ELI_LILLY_AND_COMPANY-JP201311009194

PATIENT
  Age: 74 Year
  Sex: Male

DRUGS (1)
  1. GEMZAR [Suspect]
     Indication: PANCREATIC CARCINOMA STAGE III
     Route: 042

REACTIONS (3)
  - Meningitis fungal [Fatal]
  - Hyperglycaemia [Recovering/Resolving]
  - Renal failure acute [Recovering/Resolving]
